FAERS Safety Report 9766992 (Version 5)
Quarter: 2014Q2

REPORT INFORMATION
  Report Type: Report from Study
  Country: IE (occurrence: IE)
  Receive Date: 20131217
  Receipt Date: 20140416
  Transmission Date: 20141212
  Serious: Yes (Hospitalization)
  Sender: FDA-Public Use
  Company Number: IE-SA-2013SA122342

PATIENT
  Age: 66 Year
  Sex: Male

DRUGS (12)
  1. AFLIBERCEPT [Suspect]
     Indication: COLORECTAL CANCER METASTATIC
     Route: 041
     Dates: start: 20131113, end: 20131113
  2. 5 FU [Suspect]
     Indication: COLORECTAL CANCER METASTATIC
     Route: 040
     Dates: start: 20131113, end: 20131113
  3. 5 FU [Suspect]
     Indication: COLORECTAL CANCER METASTATIC
     Route: 041
     Dates: start: 20131113, end: 20131113
  4. IRINOTECAN [Suspect]
     Indication: COLORECTAL CANCER METASTATIC
     Route: 041
     Dates: start: 20131113, end: 20131113
  5. LEUCOVORIN [Suspect]
     Indication: COLORECTAL CANCER METASTATIC
     Route: 041
     Dates: start: 20131113, end: 20131113
  6. MAXOLON [Concomitant]
     Dates: start: 20131114, end: 20131117
  7. MAXOLON [Concomitant]
     Dates: start: 20131118
  8. ANALGESICS [Concomitant]
     Dates: start: 201303
  9. ESOMEPRAZOLE [Concomitant]
     Dates: start: 201206
  10. XANAX [Concomitant]
     Dates: start: 201308
  11. ANTISPASMODICS/ ANTICHOLINERGICS [Concomitant]
     Dates: start: 201206, end: 20131118
  12. ANTISPASMODICS/ ANTICHOLINERGICS [Concomitant]
     Dates: start: 20131118

REACTIONS (2)
  - Hiccups [Recovered/Resolved]
  - Lower respiratory tract infection [Recovered/Resolved]
